FAERS Safety Report 7216235-9 (Version None)
Quarter: 2011Q1

REPORT INFORMATION
  Report Type: 
  Country: None (occurrence: None)
  Receive Date: 20110105
  Receipt Date: 20110105
  Transmission Date: 20110831
  Serious: No
  Sender: FDA-Public Use
  Company Number: None

PATIENT

DRUGS (1)
  1. CVS ANTI-BACTERIAL LIQUID SOAP CONTAINING .15% TRICLOSAN [Suspect]

REACTIONS (16)
  - GENERAL PHYSICAL HEALTH DETERIORATION [None]
  - DECREASED APPETITE [None]
  - BLEPHAROSPASM [None]
  - HEADACHE [None]
  - CHEST DISCOMFORT [None]
  - MUSCLE TWITCHING [None]
  - DYSGEUSIA [None]
  - ALLERGY TO CHEMICALS [None]
  - WEIGHT DECREASED [None]
  - ENDOCRINE DISORDER [None]
  - TOXICITY TO VARIOUS AGENTS [None]
  - HYPERSENSITIVITY [None]
  - MUSCLE ATROPHY [None]
  - NEUROTOXICITY [None]
  - THYROID DISORDER [None]
  - CHILLS [None]
